FAERS Safety Report 7445330-4 (Version None)
Quarter: 2011Q2

REPORT INFORMATION
  Report Type: 
  Country: None (occurrence: None)
  Receive Date: 20110429
  Receipt Date: 20100723
  Transmission Date: 20111010
  Serious: No
  Sender: FDA-Public Use
  Company Number: A0874248A

PATIENT
  Age: 31 Year
  Sex: Female

DRUGS (1)
  1. ZOFRAN [Suspect]
     Dosage: 1MGH TWENTY FOUR TIMES PER DAY
     Route: 058
     Dates: start: 20100720

REACTIONS (2)
  - INJECTION SITE IRRITATION [None]
  - DRUG EXPOSURE DURING PREGNANCY [None]
